FAERS Safety Report 15440712 (Version 1)
Quarter: 2018Q3

REPORT INFORMATION
  Report Type: Spontaneous
  Country: US (occurrence: US)
  Receive Date: 20180925
  Receipt Date: 20180925
  Transmission Date: 20181010
  Serious: Yes (Other)
  Sender: FDA-Public Use
  Company Number: None

PATIENT
  Age: 44 Year
  Sex: Female
  Weight: 56.25 kg

DRUGS (1)
  1. CEPHALEXIN SUBSTITUTED FOR KEFLEX [Suspect]
     Active Substance: CEPHALEXIN
     Indication: URINARY TRACT INFECTION
     Dosage: ?          QUANTITY:28 CAPSULE(S);?
     Route: 048
     Dates: start: 20180918, end: 20180925

REACTIONS (5)
  - Anger [None]
  - Agitation [None]
  - Nightmare [None]
  - Mental disorder [None]
  - Crying [None]

NARRATIVE: CASE EVENT DATE: 20180921
